FAERS Safety Report 6036414-6 (Version None)
Quarter: 2009Q1

REPORT INFORMATION
  Report Type: 
  Country: None (occurrence: None)
  Receive Date: 20090112
  Receipt Date: 20090105
  Transmission Date: 20090719
  Serious: No
  Sender: FDA-Public Use
  Company Number: APP200900005

PATIENT
  Age: 56 Year
  Sex: Female
  Weight: 82 kg

DRUGS (5)
  1. HEPARIN SODIUM INJECTION [Suspect]
     Indication: ARTERIOVENOUS FISTULA OPERATION
     Dosage: 3000 USP UNITS, ONCE, INTRAVENOUS; 2000 USP UNITS, ONCE, INTRAVENOUS
     Route: 042
     Dates: start: 20081020, end: 20081020
  2. HEPARIN SODIUM INJECTION [Suspect]
     Indication: ARTERIOVENOUS FISTULA OPERATION
     Dosage: 3000 USP UNITS, ONCE, INTRAVENOUS; 2000 USP UNITS, ONCE, INTRAVENOUS
     Route: 042
     Dates: start: 20081020, end: 20081020
  3. ROCURONIUM BROMIDE [Concomitant]
  4. NEOSTIGMINE (NEOSTIGMINE) [Concomitant]
  5. GLYCOPYRROLATE [Concomitant]

REACTIONS (1)
  - BLOOD PRESSURE DECREASED [None]
